FAERS Safety Report 8100686-4 (Version None)
Quarter: 2012Q1

REPORT INFORMATION
  Report Type: 
  Country: None (occurrence: None)
  Receive Date: 20120129
  Receipt Date: 20111107
  Transmission Date: 20120608
  Serious: No
  Sender: FDA-Public Use
  Company Number: US-ABBOTT-11P-163-0871924-00

PATIENT
  Age: 72 Year
  Sex: Male

DRUGS (6)
  1. HUMIRA [Suspect]
     Indication: CROHN'S DISEASE
     Dates: start: 20111012
  2. PREDNISONE TAB [Concomitant]
     Indication: PRODUCT USED FOR UNKNOWN INDICATION
  3. LISINOPRIL [Concomitant]
     Indication: HYPERTENSION
     Dosage: 12/12.5
  4. TOPROL-XL [Concomitant]
     Indication: HYPERTENSION
     Dosage: 25MG X 1/2 TABLET DAILY
  5. VENTOLIN [Concomitant]
     Indication: DYSPNOEA
     Dosage: TWICE DAILY AS REQUIRED
  6. CANASA [Concomitant]
     Indication: CROHN'S DISEASE

REACTIONS (3)
  - INJECTION SITE HAEMATOMA [None]
  - WRONG TECHNIQUE IN DRUG USAGE PROCESS [None]
  - INJECTION SITE HAEMORRHAGE [None]
